FAERS Safety Report 16738910 (Version 1)
Quarter: 2019Q3

REPORT INFORMATION
  Report Type: Report from Study
  Country: None (occurrence: US)
  Receive Date: 20190826
  Receipt Date: 20190826
  Transmission Date: 20191005
  Serious: Yes (Other)
  Sender: FDA-Public Use
  Company Number: US-ABBVIE-18K-163-2594994-00

PATIENT
  Sex: Male

DRUGS (1)
  1. VENCLEXTA [Suspect]
     Active Substance: VENETOCLAX
     Indication: CHRONIC LYMPHOCYTIC LEUKAEMIA
     Route: 048
     Dates: start: 20170801

REACTIONS (10)
  - Balance disorder [Recovering/Resolving]
  - Dizziness [Recovering/Resolving]
  - Gait disturbance [Unknown]
  - Increased tendency to bruise [Unknown]
  - Paranasal sinus discomfort [Recovering/Resolving]
  - Vertigo [Recovering/Resolving]
  - Intervertebral disc disorder [Recovering/Resolving]
  - Paranasal sinus hypersecretion [Recovering/Resolving]
  - Sinus headache [Recovering/Resolving]
  - Cough [Recovering/Resolving]

NARRATIVE: CASE EVENT DATE: 2018
